FAERS Safety Report 24874691 (Version 1)
Quarter: 2025Q1

REPORT INFORMATION
  Report Type: Spontaneous
  Country: US (occurrence: US)
  Receive Date: 20250122
  Receipt Date: 20250122
  Transmission Date: 20250409
  Serious: Yes (Death, Hospitalization, Other)
  Sender: PFIZER
  Company Number: US-PFIZER INC-202500012878

PATIENT
  Age: 70 Year
  Sex: Male

DRUGS (15)
  1. FENTANYL CITRATE [Suspect]
     Active Substance: FENTANYL CITRATE
     Route: 065
  2. FENTANYL CITRATE [Suspect]
     Active Substance: FENTANYL CITRATE
     Route: 048
  3. FENTANYL CITRATE [Suspect]
     Active Substance: FENTANYL CITRATE
     Route: 045
  4. NALOXONE HCL [Suspect]
     Active Substance: NALOXONE HYDROCHLORIDE
     Route: 065
  5. NALOXONE HCL [Suspect]
     Active Substance: NALOXONE HYDROCHLORIDE
     Route: 048
  6. NALOXONE HCL [Suspect]
     Active Substance: NALOXONE HYDROCHLORIDE
     Route: 045
  7. COCAINE [Suspect]
     Active Substance: COCAINE
     Route: 065
  8. COCAINE [Suspect]
     Active Substance: COCAINE
     Route: 048
  9. COCAINE [Suspect]
     Active Substance: COCAINE
     Route: 045
  10. CYPERMETHRIN [Suspect]
     Active Substance: CYPERMETHRIN
     Route: 065
  11. CYPERMETHRIN [Suspect]
     Active Substance: CYPERMETHRIN
     Route: 048
  12. CYPERMETHRIN [Suspect]
     Active Substance: CYPERMETHRIN
     Route: 045
  13. METHAMPHETAMINE [Suspect]
     Active Substance: METHAMPHETAMINE
     Route: 065
  14. METHAMPHETAMINE [Suspect]
     Active Substance: METHAMPHETAMINE
     Route: 048
  15. METHAMPHETAMINE [Suspect]
     Active Substance: METHAMPHETAMINE
     Route: 045

REACTIONS (1)
  - Completed suicide [Fatal]

NARRATIVE: CASE EVENT DATE: 20230101
